FAERS Safety Report 21270496 (Version 2)
Quarter: 2023Q1

REPORT INFORMATION
  Report Type: Spontaneous
  Country: NZ (occurrence: NZ)
  Receive Date: 20220830
  Receipt Date: 20230216
  Transmission Date: 20230417
  Serious: Yes (Other)
  Sender: FDA-Public Use
  Company Number: NZ-PFIZER INC-PV202200050980

PATIENT
  Sex: Male

DRUGS (5)
  1. PAXLOVID [Suspect]
     Active Substance: NIRMATRELVIR\RITONAVIR
     Indication: COVID-19 treatment
     Dosage: UNK
     Dates: start: 202208, end: 202208
  2. METHOTREXATE [Concomitant]
     Active Substance: METHOTREXATE
     Dosage: 2 DF (2TABS), WEEKLY, AS PER GASTROENTEROLOGIST
  3. PREDNISONE [Concomitant]
     Active Substance: PREDNISONE
     Dosage: UNK
  4. FOLIC ACID [Concomitant]
     Active Substance: FOLIC ACID
     Dosage: 1 DF (1TAB), 2DAYS A WEEK, AS PER GASTROENTEROLOGIST
  5. ERGOCALCIFEROL [Concomitant]
     Active Substance: ERGOCALCIFEROL
     Dosage: 1 DF (1CAP), MONTHLY, AS PER GASTROENTEROLOGIST

REACTIONS (7)
  - Crohn^s disease [Unknown]
  - Ankylosing spondylitis [Unknown]
  - COVID-19 [Unknown]
  - Disease recurrence [Unknown]
  - Psychotic disorder [Unknown]
  - Colostomy [Unknown]
  - Anal fistula [Unknown]

NARRATIVE: CASE EVENT DATE: 20220801
